FAERS Safety Report 10361203 (Version 2)
Quarter: 2014Q3

REPORT INFORMATION
  Report Type: Spontaneous
  Country: US (occurrence: None)
  Receive Date: 20140731
  Receipt Date: 20140923
  Transmission Date: 20150326
  Serious: Yes (Other)
  Sender: FDA-Public Use
  Company Number: 2014SGN00883

PATIENT
  Age: 45 Year
  Sex: Female
  Weight: 95.8 kg

DRUGS (33)
  1. BRENTUXIMAB VEDOTIN [Suspect]
     Active Substance: BRENTUXIMAB VEDOTIN
     Indication: ACUTE GRAFT VERSUS HOST DISEASE
     Route: 042
     Dates: start: 20140515, end: 20140618
  2. LAMOTRIGINE. [Concomitant]
     Active Substance: LAMOTRIGINE
  3. AMLODIPINE BESILATE [Concomitant]
     Active Substance: AMLODIPINE BESYLATE
  4. OLANZAPINE. [Concomitant]
     Active Substance: OLANZAPINE
  5. DOCUSATE [Concomitant]
     Active Substance: DOCUSATE
  6. LEVALBUTEROL [Concomitant]
     Active Substance: LEVALBUTEROL
  7. MYCOPHENOLATE MOFETIL. [Concomitant]
     Active Substance: MYCOPHENOLATE MOFETIL
  8. FOLIC ACID. [Concomitant]
     Active Substance: FOLIC ACID
  9. FILGRASTIM [Concomitant]
     Active Substance: FILGRASTIM
  10. METOPROLOL [Concomitant]
     Active Substance: METOPROLOL
  11. OTHER AGENTS FOR TREATMENT OF HEMORRHOIDS AND ANAL FISSURES FOR TOPICA [Concomitant]
  12. URSODIOL. [Concomitant]
     Active Substance: URSODIOL
  13. MEDROXYPROGESTERONE [Concomitant]
     Active Substance: MEDROXYPROGESTERONE
  14. DRAMINE (MECLOZINE HYDROHCLORIDE) [Concomitant]
  15. SENNA [Concomitant]
     Active Substance: SENNA LEAF\SENNOSIDES\SENNOSIDES A AND B
  16. ALTEPLASE [Concomitant]
     Active Substance: ALTEPLASE
  17. MAGNESIUM PLUS (MAGNESIUM) [Concomitant]
  18. CYCLOSPORINE. [Concomitant]
     Active Substance: CYCLOSPORINE
  19. OTHER THERAPEUTIC PRODUCTS [Concomitant]
     Active Substance: UNSPECIFIED INGREDIENT
  20. INSULIN [Concomitant]
     Active Substance: INSULIN NOS
  21. SIMETHICONE [Concomitant]
     Active Substance: DIMETHICONE\SILICON DIOXIDE\SIMETHICONE
  22. MENTHOL W/ZINC OXIDE [Concomitant]
  23. MULTIVITAMIN (ASCORBIC ACID, CALCIUM PANTOTHENATE, ERGOCALCIFEROL, NICOTINAMIDE, PYRIDOXINE HYDROCHLORIDE, RETINOL, RIBOFLAVIN, THIAMINE HYDROCHLORIDE) [Concomitant]
  24. INSULIN ASPART [Concomitant]
     Active Substance: INSULIN ASPART
  25. METOCLOPRAMIDE. [Concomitant]
     Active Substance: METOCLOPRAMIDE
  26. LORTADINE (LORATADINE) [Concomitant]
  27. POTASSIUM CHLORIDE. [Concomitant]
     Active Substance: POTASSIUM CHLORIDE
  28. MIRTAZAPINE. [Concomitant]
     Active Substance: MIRTAZAPINE
  29. LORAZEPAM. [Concomitant]
     Active Substance: LORAZEPAM
  30. FOSCARNET SODIUM. [Concomitant]
     Active Substance: FOSCARNET SODIUM
  31. POSACONAZOLE [Concomitant]
     Active Substance: POSACONAZOLE
  32. PANTOPRAZOLE [Concomitant]
     Active Substance: PANTOPRAZOLE SODIUM
  33. PREDNISONE. [Concomitant]
     Active Substance: PREDNISONE

REACTIONS (3)
  - Small intestinal obstruction [None]
  - Ileus [None]
  - Diarrhoea [None]

NARRATIVE: CASE EVENT DATE: 20140627
